FAERS Safety Report 8004869-3 (Version None)
Quarter: 2011Q4

REPORT INFORMATION
  Report Type: 
  Country: None (occurrence: None)
  Receive Date: 20111223
  Receipt Date: 20111223
  Transmission Date: 20120403
  Serious: Yes (Hospitalization)
  Sender: FDA-Public Use
  Company Number: None

PATIENT
  Age: 50 Year
  Sex: Male
  Weight: 104.32 kg

DRUGS (1)
  1. FIBER THERAPY -PSYLLIUM HUSK- [Suspect]
     Indication: CONSTIPATION
     Dosage: 5 CAPSULES -0.52 G / CAPSULE-
     Route: 048
     Dates: start: 20111220, end: 20111221

REACTIONS (4)
  - PRURITUS [None]
  - URTICARIA [None]
  - DYSPNOEA [None]
  - CHEST DISCOMFORT [None]
